FAERS Safety Report 21146288 (Version 1)
Quarter: 2022Q3

REPORT INFORMATION
  Report Type: Spontaneous
  Country: US (occurrence: US)
  Receive Date: 20220729
  Receipt Date: 20220729
  Transmission Date: 20221027
  Serious: No
  Sender: FDA-Public Use
  Company Number: US-JNJFOC-20220753283

PATIENT
  Age: 85 Year
  Sex: Male

DRUGS (1)
  1. TYLENOL 8HR [Suspect]
     Active Substance: ACETAMINOPHEN
     Indication: Back pain
     Dosage: TOOK TWO DOSES OF TWO TABLETS 2.5 HOURS APART
     Route: 065

REACTIONS (1)
  - Extra dose administered [Unknown]
